FAERS Safety Report 15477890 (Version 1)
Quarter: 2018Q4

REPORT INFORMATION
  Report Type: Spontaneous
  Country: US (occurrence: US)
  Receive Date: 20181002
  Receipt Date: 20181002
  Transmission Date: 20190205
  Serious: Yes (Hospitalization)
  Sender: FDA-Public Use
  Company Number: None

PATIENT
  Age: 50 Year
  Sex: Male
  Weight: 80.1 kg

DRUGS (6)
  1. ATORVASTATIN [Concomitant]
     Active Substance: ATORVASTATIN
  2. TRAZDONE [Concomitant]
     Active Substance: TRAZODONE HYDROCHLORIDE
  3. PARASUGREL [Concomitant]
  4. ASPIRIN. [Concomitant]
     Active Substance: ASPIRIN
  5. METOPROLOL TARTRATE 25MG [Suspect]
     Active Substance: METOPROLOL TARTRATE
     Indication: BLOOD PRESSURE MEASUREMENT
     Dosage: ?          QUANTITY:180 TABLET(S);?
     Route: 048
  6. RANEXA [Concomitant]
     Active Substance: RANOLAZINE

REACTIONS (3)
  - Product substitution issue [None]
  - Hypertension [None]
  - Hypotension [None]

NARRATIVE: CASE EVENT DATE: 20181002
